FAERS Safety Report 5993341-8 (Version None)
Quarter: 2008Q4

REPORT INFORMATION
  Report Type: 
  Country: None (occurrence: None)
  Receive Date: 20081210
  Receipt Date: 20081210
  Transmission Date: 20090506
  Serious: No
  Sender: FDA-Public Use
  Company Number: None

PATIENT
  Sex: Female
  Weight: 63.27 kg

DRUGS (25)
  1. HUMIRA [Suspect]
     Dosage: 40MG/0.8ML PEN IJ KIT 40 MG EVERY OTHER WEEK
     Route: 058
     Dates: start: 20080804, end: 20081210
  2. AZITHROMYCIN [Concomitant]
  3. CALCIUM [Concomitant]
  4. CARAFATE SUSPENSION (SUCRALFATE SUSPENSION) [Concomitant]
  5. DETROL [Concomitant]
  6. DITROPAN XL (OXYBUTYNIN CHLORIDE XL) [Concomitant]
  7. ENBREL [Concomitant]
  8. FOLIC ACID [Concomitant]
  9. KLOR-CON (LCL SLOW REL.) [Concomitant]
  10. LEVOFLOXACIN [Concomitant]
  11. LIDODERM [Concomitant]
  12. LIPITOR [Concomitant]
  13. LOTRISONE CREAM (BETAMETHASONE AND CLOTRIMAZOLE) [Concomitant]
  14. METHOTREXATE [Concomitant]
  15. NAPROSYN [Concomitant]
  16. NASONEX [Concomitant]
  17. NEURONTIN [Concomitant]
  18. PREDNISONE TAB [Concomitant]
  19. PREMARIN CREAM (CONJUGATED ESTROGENS) [Concomitant]
  20. PRILOSEC [Concomitant]
  21. SYNTHROID [Concomitant]
  22. TRAZODONE HCL [Concomitant]
  23. VICODIN [Concomitant]
  24. ZOLOFT [Concomitant]
  25. ZOMETA [Concomitant]

REACTIONS (1)
  - ASTHENIA [None]
